FAERS Safety Report 5709302-X (Version None)
Quarter: 2008Q2

REPORT INFORMATION
  Report Type: 
  Country: None (occurrence: None)
  Receive Date: 20080418
  Receipt Date: 20080408
  Transmission Date: 20081010
  Serious: Yes (Other)
  Sender: FDA-Public Use
  Company Number: GB-ELI_LILLY_AND_COMPANY-GB200804002247

PATIENT
  Sex: Male

DRUGS (4)
  1. ALIMTA [Suspect]
     Indication: MESOTHELIOMA
     Dosage: UNK, UNKNOWN
     Route: 065
     Dates: start: 20060501
  2. GEMZAR [Suspect]
     Indication: MESOTHELIOMA
     Dosage: UNK, UNKNOWN
     Route: 065
     Dates: start: 20080201
  3. CISPLATIN [Concomitant]
     Indication: MESOTHELIOMA
     Dosage: UNK, UNKNOWN
     Route: 065
     Dates: start: 20060501
  4. CARBOPLATIN [Concomitant]
     Indication: MESOTHELIOMA
     Dosage: UNK, UNKNOWN
     Route: 065
     Dates: start: 20080201

REACTIONS (6)
  - CHEST DISCOMFORT [None]
  - LIP SWELLING [None]
  - OEDEMA PERIPHERAL [None]
  - RASH GENERALISED [None]
  - RASH MACULAR [None]
  - URTICARIA [None]
